FAERS Safety Report 11030947 (Version 1)
Quarter: 2015Q2

REPORT INFORMATION
  Report Type: Report from Study
  Country: BR (occurrence: BR)
  Receive Date: 20150415
  Receipt Date: 20150415
  Transmission Date: 20150821
  Serious: Yes (Other)
  Sender: FDA-Public Use
  Company Number: BR-BAYER-2015-122117

PATIENT
  Age: 30 Year
  Sex: Male

DRUGS (1)
  1. ASPIRINA [Suspect]
     Active Substance: ASPIRIN
     Dosage: UNK
     Route: 048
     Dates: start: 2005

REACTIONS (3)
  - Seizure [None]
  - Feeling abnormal [None]
  - Syncope [None]

NARRATIVE: CASE EVENT DATE: 2005
